FAERS Safety Report 10349776 (Version 1)
Quarter: 2014Q3

REPORT INFORMATION
  Report Type: Report from Study
  Country: CN (occurrence: CN)
  Receive Date: 20140730
  Receipt Date: 20140730
  Transmission Date: 20150326
  Serious: Yes (Other)
  Sender: FDA-Public Use
  Company Number: CN-ROCHE-1439521

PATIENT

DRUGS (3)
  1. BEVACIZUMAB [Suspect]
     Active Substance: BEVACIZUMAB
     Indication: METASTATIC MALIGNANT MELANOMA
     Dosage: DAY 1
     Route: 065
  2. CARBOPLATIN. [Suspect]
     Active Substance: CARBOPLATIN
     Indication: METASTATIC MALIGNANT MELANOMA
     Dosage: DAY 1
     Route: 065
  3. ABRAXANE [Suspect]
     Active Substance: PACLITAXEL
     Indication: METASTATIC MALIGNANT MELANOMA
     Dosage: DAY 1
     Route: 065

REACTIONS (3)
  - Anaemia [Unknown]
  - Thrombocytopenia [Unknown]
  - Leukopenia [Unknown]
